FAERS Safety Report 8796311 (Version 6)
Quarter: 2014Q1

REPORT INFORMATION
  Report Type: Spontaneous
  Country: US (occurrence: US)
  Receive Date: 20120919
  Receipt Date: 20140205
  Transmission Date: 20141002
  Serious: Yes (Other)
  Sender: FDA-Public Use
  Company Number: US-PFIZER INC-2012230745

PATIENT
  Age: 56 Year
  Sex: Male
  Weight: 83.45 kg

DRUGS (17)
  1. NEURONTIN [Suspect]
     Indication: NEUROPATHY PERIPHERAL
     Dosage: 300 MG, 3X/DAY
     Route: 048
     Dates: start: 1995
  2. ACCUPRIL [Suspect]
     Indication: HYPERTENSION
     Dosage: 40 MG, DAILY
     Route: 048
     Dates: start: 1989
  3. METFORMIN HYDROCHLORIDE [Suspect]
     Indication: DIABETES MELLITUS
     Dosage: 500 MG, 2X/DAY
  4. METFORMIN HYDROCHLORIDE [Suspect]
     Dosage: TWO TABLETS OF 500MG IN MORNING AND 500MG IN EVENING
  5. LANTUS [Suspect]
     Indication: DIABETES MELLITUS
     Dosage: 80 UNITS, 1X/DAY
  6. LANTUS [Suspect]
     Dosage: 30 IU, DAILY
  7. INSULIN [Suspect]
     Indication: DIABETES MELLITUS
     Dosage: UNK
  8. NEXIUM [Concomitant]
     Indication: GASTROOESOPHAGEAL REFLUX DISEASE
     Dosage: 40 MG, 1X/DAY
  9. LOVASTATIN [Concomitant]
     Indication: BLOOD CHOLESTEROL INCREASED
     Dosage: UNK
  10. COUMADIN [Concomitant]
     Indication: ANTICOAGULANT THERAPY
     Dosage: UNK
  11. PRAVASTATIN [Concomitant]
     Indication: BLOOD CHOLESTEROL INCREASED
     Dosage: 40 MG, DAILY
  12. JANTOVEN [Concomitant]
     Indication: ANTICOAGULANT THERAPY
     Dosage: 6MG ON MONDAY AND 4MG DAILY FOR REST OF THE WEEK
  13. CITALOPRAM [Concomitant]
     Dosage: 40 MG, DAILY
  14. B100 COMPLEX WITH FOLIC ACID [Concomitant]
     Dosage: 800 UG, 2X/DAY
  15. MENTAX [Concomitant]
     Indication: PERIPHERAL VASCULAR DISORDER
     Dosage: UNK
  16. VITAMIN B100 COMPLEX [Concomitant]
     Indication: PERIPHERAL VASCULAR DISORDER
     Dosage: UNK
  17. FOLIC ACID [Concomitant]
     Indication: PERIPHERAL VASCULAR DISORDER
     Dosage: UNK

REACTIONS (5)
  - Cerebrovascular accident [Unknown]
  - Brain injury [Unknown]
  - Pulmonary embolism [Unknown]
  - Diabetes mellitus inadequate control [Not Recovered/Not Resolved]
  - Renal disorder [Unknown]
